FAERS Safety Report 21596581 (Version 1)
Quarter: 2022Q4

REPORT INFORMATION
  Report Type: Spontaneous
  Country: US (occurrence: US)
  Receive Date: 20221115
  Receipt Date: 20221115
  Transmission Date: 20230113
  Serious: Yes (Other)
  Sender: FDA-Public Use
  Company Number: US-MYLANLABS-2022M1126837

PATIENT
  Age: 60 Year
  Sex: Male

DRUGS (15)
  1. METHOTREXATE [Suspect]
     Active Substance: METHOTREXATE
     Indication: Mantle cell lymphoma
     Dosage: UNK
     Route: 037
  2. BUSULFAN [Suspect]
     Active Substance: BUSULFAN
     Indication: Bone marrow conditioning regimen
     Dosage: UNK
     Route: 065
  3. THIOTEPA [Suspect]
     Active Substance: THIOTEPA
     Indication: Bone marrow conditioning regimen
     Dosage: UNK
     Route: 065
  4. RITUXIMAB [Concomitant]
     Active Substance: RITUXIMAB
     Indication: Mantle cell lymphoma
     Dosage: UNK UNK, CYCLE; 6 CYCLES
     Route: 065
  5. RITUXIMAB [Concomitant]
     Active Substance: RITUXIMAB
     Dosage: UNK UNK, CYCLE; 3 CYCLES
     Route: 065
  6. CYCLOPHOSPHAMIDE [Concomitant]
     Active Substance: CYCLOPHOSPHAMIDE
     Indication: Mantle cell lymphoma
     Dosage: UNK UNK, CYCLE; 6 CYCLES
     Route: 065
  7. VINCRISTINE [Concomitant]
     Active Substance: VINCRISTINE
     Indication: Mantle cell lymphoma
     Dosage: UNK UNK, CYCLE; 6 CYCLES
     Route: 065
  8. DOXORUBICIN [Concomitant]
     Active Substance: DOXORUBICIN
     Indication: Mantle cell lymphoma
     Dosage: UNK UNK, CYCLE; 6 CYCLES
     Route: 065
  9. DEXAMETHASONE [Concomitant]
     Active Substance: DEXAMETHASONE
     Indication: Mantle cell lymphoma
     Dosage: UNK UNK, CYCLE; 6 CYCLES
     Route: 065
  10. IBRUTINIB [Concomitant]
     Active Substance: IBRUTINIB
     Indication: Mantle cell lymphoma
     Dosage: 560 MILLIGRAM, QD
     Route: 065
  11. IBRUTINIB [Concomitant]
     Active Substance: IBRUTINIB
     Dosage: INITIALLY STOPPED AND LATER RESUMED
     Route: 065
  12. IFOSFAMIDE [Concomitant]
     Active Substance: IFOSFAMIDE
     Indication: Mantle cell lymphoma
     Dosage: UNK UNK, CYCLE; 3 CYCLES
     Route: 065
  13. CARBOPLATIN [Concomitant]
     Active Substance: CARBOPLATIN
     Indication: Mantle cell lymphoma
     Dosage: UNK UNK, CYCLE; 3 CYCLES
     Route: 065
  14. ETOPOSIDE [Concomitant]
     Active Substance: ETOPOSIDE
     Indication: Mantle cell lymphoma
     Dosage: UNK UNK, CYCLE; 3 CYCLES
     Route: 065
  15. Immunoglobulin [Concomitant]
     Indication: Pancytopenia
     Dosage: UNK; INTRAVENOUS (NOT SPECIFIED)
     Route: 042

REACTIONS (2)
  - Myelopathy [Recovering/Resolving]
  - Pancytopenia [Recovered/Resolved]
